FAERS Safety Report 8298722-8 (Version None)
Quarter: 2012Q2

REPORT INFORMATION
  Report Type: 
  Country: None (occurrence: None)
  Receive Date: 20120419
  Receipt Date: 20120409
  Transmission Date: 20120825
  Serious: Yes (Hospitalization, Other)
  Sender: FDA-Public Use
  Company Number: US-JNJFOC-20120403935

PATIENT
  Sex: Male

DRUGS (2)
  1. HALDOL [Suspect]
     Indication: SCHIZOPHRENIA
     Route: 030
     Dates: start: 20110901, end: 20120104
  2. HALDOL [Suspect]
     Route: 030
     Dates: start: 20120405

REACTIONS (4)
  - CATATONIA [None]
  - INJURY [None]
  - SCHIZOPHRENIA [None]
  - HOSPITALISATION [None]
